FAERS Safety Report 18004603 (Version 1)
Quarter: 2020Q3

REPORT INFORMATION
  Report Type: Spontaneous
  Country: US (occurrence: US)
  Receive Date: 20200709
  Receipt Date: 20200709
  Transmission Date: 20201103
  Serious: Yes (Hospitalization)
  Sender: FDA-Public Use
  Company Number: None

PATIENT
  Age: 52 Year
  Sex: Female
  Weight: 88.45 kg

DRUGS (1)
  1. TETRACYCLINE HCL CAPSULES 250MG [Suspect]
     Active Substance: TETRACYCLINE HYDROCHLORIDE
     Dosage: ?          QUANTITY:2 DF DOSAGE FORM;?
     Route: 048

REACTIONS (2)
  - Chest pain [None]
  - Muscular weakness [None]

NARRATIVE: CASE EVENT DATE: 2019
